FAERS Safety Report 8309854-X (Version None)
Quarter: 2012Q2

REPORT INFORMATION
  Report Type: 
  Country: None (occurrence: None)
  Receive Date: 20120423
  Receipt Date: 20120412
  Transmission Date: 20120825
  Serious: Yes (Other)
  Sender: FDA-Public Use
  Company Number: 08-AUR-04083

PATIENT
  Age: 78 Year
  Sex: Male
  Weight: 78 kg

DRUGS (10)
  1. AMIODARONE HCL [Suspect]
     Indication: PRODUCT USED FOR UNKNOWN INDICATION
     Dosage: 200 MG (200 MG, 1 IN 1 D),
  2. FUROSEMIDE [Suspect]
     Indication: PRODUCT USED FOR UNKNOWN INDICATION
     Dosage: (120 MG, 1 IN 1 D),
  3. LANSOPRAZOLE [Suspect]
     Indication: PRODUCT USED FOR UNKNOWN INDICATION
     Dosage: 30 (30 MG, 1 IN 1 D),
  4. ASPIRIN [Suspect]
     Indication: PRODUCT USED FOR UNKNOWN INDICATION
     Dosage: (75 MG, 1 D),
  5. ACIPIMOX (ACIPIMOX) [Suspect]
     Indication: PRODUCT USED FOR UNKNOWN INDICATION
     Dosage: 250 MG (250 MG, 2 IN 1 D),
  6. PERINDOPRIL ERBUMINE [Suspect]
     Indication: PRODUCT USED FOR UNKNOWN INDICATION
     Dosage: 2 MG (2 MG, 1 IN 1 D),
  7. EZETIMIBE [Suspect]
     Indication: PRODUCT USED FOR UNKNOWN INDICATION
     Dosage: (10 MG, 1 D), ORAL
     Route: 048
  8. DIGOXIN [Suspect]
     Indication: PRODUCT USED FOR UNKNOWN INDICATION
     Dosage: (0.125 MG, 1 D),
  9. WARFARIN SODIUM [Concomitant]
  10. BISOPROLOL FUMARATE [Suspect]
     Indication: PRODUCT USED FOR UNKNOWN INDICATION
     Dosage: 2MG IN THE MORNING, 5MG LATER (7 MG, 1 D)

REACTIONS (16)
  - VENOUS PRESSURE JUGULAR INCREASED [None]
  - OEDEMA PERIPHERAL [None]
  - DYSPNOEA [None]
  - CARDIAC MURMUR [None]
  - PALPITATIONS [None]
  - OEDEMA [None]
  - ATRIAL FIBRILLATION [None]
  - STEM CELL TRANSPLANT [None]
  - DRUG INEFFECTIVE [None]
  - LEFT VENTRICULAR DYSFUNCTION [None]
  - FEELING ABNORMAL [None]
  - DISSOCIATION [None]
  - FATIGUE [None]
  - DIZZINESS [None]
  - VENTRICULAR TACHYCARDIA [None]
  - PARAESTHESIA [None]
